FAERS Safety Report 4590976-4 (Version None)
Quarter: 2005Q1

REPORT INFORMATION
  Report Type: 
  Country: None (occurrence: None)
  Receive Date: 20050222
  Receipt Date: 20050222
  Transmission Date: 20050727
  Serious: Yes (Hospitalization, Other)
  Sender: FDA-Public Use
  Company Number: None

PATIENT
  Sex: Male
  Weight: 81.7 kg

DRUGS (1)
  1. CAMPATH [Suspect]
     Dates: start: 20050107

REACTIONS (6)
  - BLOOD GLUCOSE INCREASED [None]
  - COORDINATION ABNORMAL [None]
  - CSF CELL COUNT ABNORMAL [None]
  - DYSPHAGIA [None]
  - ORTHOSTATIC HYPOTENSION [None]
  - THROMBOPHLEBITIS SUPERFICIAL [None]
